FAERS Safety Report 8037153-2 (Version None)
Quarter: 2012Q1

REPORT INFORMATION
  Report Type: 
  Country: None (occurrence: None)
  Receive Date: 20120106
  Receipt Date: 20111230
  Transmission Date: 20120608
  Serious: Yes (Other)
  Sender: FDA-Public Use
  Company Number: 1000026673

PATIENT
  Age: 60 Year
  Sex: Female

DRUGS (1)
  1. DALIRESP [Suspect]
     Indication: EMPHYSEMA
     Dosage: 500 MCG (500 MCG, 1 IN 1 D), ORAL
     Route: 048
     Dates: start: 20111206, end: 20111201

REACTIONS (2)
  - CONVULSION [None]
  - OFF LABEL USE [None]
